FAERS Safety Report 10192637 (Version 1)
Quarter: 2014Q2

REPORT INFORMATION
  Report Type: Report from Study
  Country: IT (occurrence: IT)
  Receive Date: 20140523
  Receipt Date: 20140523
  Transmission Date: 20141212
  Serious: Yes (Death)
  Sender: FDA-Public Use
  Company Number: IT-BAXTER-2014BAX025368

PATIENT
  Age: 90 Year
  Sex: 0

DRUGS (7)
  1. ENDOXAN BAXTER [Suspect]
     Indication: CHRONIC LYMPHOCYTIC LEUKAEMIA
     Dosage: 150 MG/MQ DAY 1 TO 3
     Route: 065
  2. ENDOXAN BAXTER [Suspect]
     Indication: NON-HODGKIN^S LYMPHOMA
  3. FLUDARABINE [Suspect]
     Indication: CHRONIC LYMPHOCYTIC LEUKAEMIA
     Dosage: 25 MG/MQ
     Route: 048
  4. FLUDARABINE [Suspect]
     Indication: NON-HODGKIN^S LYMPHOMA
  5. TRIMETHOPRIM [Concomitant]
     Indication: ANTIBIOTIC PROPHYLAXIS
     Route: 065
  6. ALLOPURINOL [Concomitant]
     Indication: ANTIBIOTIC PROPHYLAXIS
     Dosage: DAYS 0 TO 4
     Route: 065
  7. SULFAMETHOXAZOLE [Concomitant]
     Indication: ANTIBIOTIC PROPHYLAXIS
     Route: 065

REACTIONS (1)
  - Aplastic anaemia [Fatal]
